FAERS Safety Report 17018164 (Version 16)
Quarter: 2025Q3

REPORT INFORMATION
  Report Type: Report from Study
  Country: US (occurrence: US)
  Receive Date: 20191111
  Receipt Date: 20250812
  Transmission Date: 20251021
  Serious: Yes (Hospitalization, Other)
  Sender: TAKEDA
  Company Number: US-SHIRE-US201937006

PATIENT
  Age: 76 Year
  Sex: Female
  Weight: 62 kg

DRUGS (25)
  1. HUMAN IMMUNOGLOBULIN G [Suspect]
     Active Substance: HUMAN IMMUNOGLOBULIN G
     Indication: Immunodeficiency common variable
     Dosage: 6 GRAM, 1/WEEK
     Dates: start: 20180823
  2. HUMAN IMMUNOGLOBULIN G [Suspect]
     Active Substance: HUMAN IMMUNOGLOBULIN G
     Dosage: 8 GRAM, 1/WEEK
  3. HUMAN IMMUNOGLOBULIN G [Suspect]
     Active Substance: HUMAN IMMUNOGLOBULIN G
     Dosage: 10 GRAM, 1/WEEK
  4. DIPHENHYDRAMINE [Concomitant]
     Active Substance: DIPHENHYDRAMINE
  5. GLIMEPIRIDE [Concomitant]
     Active Substance: GLIMEPIRIDE
  6. ATENOLOL [Concomitant]
     Active Substance: ATENOLOL
  7. EPINEPHRINE [Concomitant]
     Active Substance: EPINEPHRINE
  8. AMLODIPINE [Concomitant]
     Active Substance: AMLODIPINE BESYLATE
  9. KLOR-CON [Concomitant]
     Active Substance: POTASSIUM CHLORIDE
  10. ASPIRIN [Concomitant]
     Active Substance: ASPIRIN
  11. ACETAMINOPHEN [Concomitant]
     Active Substance: ACETAMINOPHEN
  12. SINGULAIR [Concomitant]
     Active Substance: MONTELUKAST SODIUM
  13. LANSOPRAZOLE [Concomitant]
     Active Substance: LANSOPRAZOLE
  14. SULINDAC [Concomitant]
     Active Substance: SULINDAC
     Indication: Product used for unknown indication
  15. LASIX [Concomitant]
     Active Substance: FUROSEMIDE
  16. ADVAIR HFA [Concomitant]
     Active Substance: FLUTICASONE PROPIONATE\SALMETEROL XINAFOATE
     Indication: Product used for unknown indication
  17. LIPITOR [Concomitant]
     Active Substance: ATORVASTATIN CALCIUM
  18. SERTRALINE HYDROCHLORIDE [Concomitant]
     Active Substance: SERTRALINE HYDROCHLORIDE
  19. KEFLEX [Concomitant]
     Active Substance: CEPHALEXIN
     Indication: Product used for unknown indication
  20. FOSAMAX [Concomitant]
     Active Substance: ALENDRONATE SODIUM
  21. ECHINACEA [Concomitant]
     Active Substance: ECHINACEA, UNSPECIFIED
  22. ZINC [Concomitant]
     Active Substance: ZINC
  23. AMLODIPINE BESYLATE [Concomitant]
     Active Substance: AMLODIPINE BESYLATE
  24. VITAMINS [Concomitant]
     Active Substance: VITAMINS
  25. DIPHENHYDRAMINE HYDROCHLORIDE [Concomitant]
     Active Substance: DIPHENHYDRAMINE HYDROCHLORIDE

REACTIONS (20)
  - Sepsis [Unknown]
  - Kidney infection [Unknown]
  - Nephrolithiasis [Unknown]
  - Carpal tunnel syndrome [Unknown]
  - Gait disturbance [Unknown]
  - Blood pressure decreased [Unknown]
  - Road traffic accident [Unknown]
  - Chronic kidney disease [Unknown]
  - COVID-19 [Unknown]
  - Eye pruritus [Unknown]
  - Fall [Unknown]
  - Painful respiration [Unknown]
  - Head injury [Unknown]
  - Limb injury [Unknown]
  - Rib fracture [Unknown]
  - Product dose omission issue [Unknown]
  - Contusion [Unknown]
  - Infusion site swelling [Unknown]
  - Pain [Unknown]
  - Back pain [Unknown]

NARRATIVE: CASE EVENT DATE: 20210501
